FAERS Safety Report 24993363 (Version 3)
Quarter: 2025Q1

REPORT INFORMATION
  Report Type: Report from Study
  Country: CA (occurrence: CA)
  Receive Date: 20250221
  Receipt Date: 20250307
  Transmission Date: 20250409
  Serious: Yes (Other)
  Sender: TAKEDA
  Company Number: CA-TAKEDA-2025TUS014763

PATIENT
  Sex: Female

DRUGS (3)
  1. VEDOLIZUMAB [Suspect]
     Active Substance: VEDOLIZUMAB
     Indication: Colitis ulcerative
  2. Salofalk [Concomitant]
  3. ENTOCORT [Concomitant]
     Active Substance: BUDESONIDE

REACTIONS (3)
  - Clostridium difficile infection [Unknown]
  - Headache [Unknown]
  - Sinusitis [Not Recovered/Not Resolved]
